FAERS Safety Report 5211693-3 (Version None)
Quarter: 2007Q1

REPORT INFORMATION
  Report Type: 
  Country: None (occurrence: None)
  Receive Date: 20070118
  Receipt Date: 20070110
  Transmission Date: 20070707
  Serious: Yes (Hospitalization)
  Sender: FDA-Public Use
  Company Number: DE-BAYER-200710246GDS

PATIENT
  Sex: Male

DRUGS (2)
  1. ACTIMAX [Suspect]
     Indication: PNEUMONIA
     Route: 048
     Dates: start: 20070105
  2. TAMSULOSIN HCL [Concomitant]
     Indication: PROSTATE EXAMINATION ABNORMAL
     Route: 048

REACTIONS (2)
  - DYSURIA [None]
  - URINARY TRACT OBSTRUCTION [None]
